FAERS Safety Report 6085176-5 (Version None)
Quarter: 2009Q1

REPORT INFORMATION
  Report Type: 
  Country: None (occurrence: None)
  Receive Date: 20090220
  Receipt Date: 20090209
  Transmission Date: 20090719
  Serious: Yes (Death)
  Sender: FDA-Public Use
  Company Number: GB-ROCHE-607267

PATIENT
  Sex: Female
  Weight: 59.3 kg

DRUGS (4)
  1. MYCOPHENOLATE MOFETIL [Suspect]
     Indication: ANTI-NEUTROPHIL CYTOPLASMIC ANTIBODY POSITIVE VASCULITIS
     Route: 065
     Dates: start: 20080512
  2. MYCOPHENOLATE MOFETIL [Suspect]
     Dosage: FREQUENCY: 1GRAM/0.5GRAM/1 GRAM/DAY
     Route: 065
     Dates: start: 20080815, end: 20081104
  3. PREDNISOLONE [Suspect]
     Indication: ANTI-NEUTROPHIL CYTOPLASMIC ANTIBODY POSITIVE VASCULITIS
     Route: 065
  4. PREDNISOLONE [Suspect]
     Route: 065

REACTIONS (4)
  - ABDOMINAL SEPSIS [None]
  - BRONCHIECTASIS [None]
  - INTESTINAL PERFORATION [None]
  - PNEUMONIA [None]
